FAERS Safety Report 6982638-0 (Version None)
Quarter: 2010Q3

REPORT INFORMATION
  Report Type: 
  Country: None (occurrence: None)
  Receive Date: 20100909
  Receipt Date: 20100823
  Transmission Date: 20110219
  Serious: Yes (Other)
  Sender: FDA-Public Use
  Company Number: 20100404

PATIENT
  Age: 71 Year
  Sex: Female

DRUGS (1)
  1. METHYLENE BLUE INJECTION, USP (0301-10) 1% [Suspect]
     Indication: METHAEMOGLOBINAEMIA
     Dosage: 5ML; THEN 5 ML TILL TOTAL 20ML INTRAVENOUS
     Route: 042

REACTIONS (2)
  - DRUG INTERACTION [None]
  - HYPERTENSION [None]
